FAERS Safety Report 9886100 (Version 3)
Quarter: 2014Q1

REPORT INFORMATION
  Report Type: Spontaneous
  Country: DE (occurrence: DE)
  Receive Date: 20140210
  Receipt Date: 20140325
  Transmission Date: 20141002
  Serious: Yes (Hospitalization)
  Sender: FDA-Public Use
  Company Number: DE-JNJFOC-20140201510

PATIENT
  Age: 78 Year
  Sex: Female
  Weight: 100 kg

DRUGS (3)
  1. XARELTO [Suspect]
     Indication: CEREBROVASCULAR ACCIDENT PROPHYLAXIS
     Route: 048
     Dates: start: 20130730
  2. XARELTO [Suspect]
     Indication: ATRIAL FIBRILLATION
     Route: 048
     Dates: start: 20130730
  3. MONO EMBOLEX [Concomitant]
     Route: 065
     Dates: start: 201311, end: 201311

REACTIONS (5)
  - Procedural haemorrhage [Recovered/Resolved]
  - Circulatory collapse [Recovered/Resolved]
  - Haemoglobin decreased [Recovered/Resolved]
  - Melaena [Unknown]
  - Helicobacter test positive [Unknown]
